FAERS Safety Report 14584184 (Version 3)
Quarter: 2019Q3

REPORT INFORMATION
  Report Type: Spontaneous
  Country: US (occurrence: US)
  Receive Date: 20180228
  Receipt Date: 20190711
  Transmission Date: 20191004
  Serious: No
  Sender: FDA-Public Use
  Company Number: US-JNJFOC-20180220936

PATIENT
  Sex: Male

DRUGS (1)
  1. ZYTIGA [Suspect]
     Active Substance: ABIRATERONE ACETATE
     Indication: PRODUCT USED FOR UNKNOWN INDICATION
     Dosage: STRENGTH 250 MG
     Route: 048
     Dates: start: 20171115

REACTIONS (5)
  - Mood swings [Unknown]
  - Weight decreased [Unknown]
  - Blood pressure abnormal [Unknown]
  - Hepatic enzyme increased [Not Recovered/Not Resolved]
  - Hot flush [Unknown]
